FAERS Safety Report 6158083-7 (Version None)
Quarter: 2009Q2

REPORT INFORMATION
  Report Type: 
  Country: None (occurrence: None)
  Receive Date: 20090417
  Receipt Date: 20090410
  Transmission Date: 20091009
  Serious: Yes (Hospitalization)
  Sender: FDA-Public Use
  Company Number: PHHY2009JP13206

PATIENT
  Age: 77 Year
  Sex: Female

DRUGS (5)
  1. LOCHOL [Suspect]
     Indication: HYPERCHOLESTEROLAEMIA
     Dosage: 20 MG DAILY
     Route: 048
     Dates: start: 20081126, end: 20090311
  2. LOCHOL [Suspect]
     Dosage: 30 MG DAILY
     Route: 048
     Dates: start: 20090312, end: 20090325
  3. IMIDAPRIL HYDROCHLORIDE [Concomitant]
     Dosage: 2.5 MG
     Route: 048
     Dates: start: 20081126, end: 20090325
  4. LASIX [Concomitant]
     Dosage: 20 MG
     Route: 048
     Dates: start: 20081126
  5. LASIX [Concomitant]
     Dosage: 80 MG
     Route: 048
     Dates: end: 20090327

REACTIONS (4)
  - BLOOD CREATINE PHOSPHOKINASE INCREASED [None]
  - CREATININE RENAL CLEARANCE DECREASED [None]
  - HYPERCHOLESTEROLAEMIA [None]
  - NEPHROTIC SYNDROME [None]
